FAERS Safety Report 23493531 (Version 2)
Quarter: 2024Q3

REPORT INFORMATION
  Report Type: Spontaneous
  Country: PT (occurrence: PT)
  Receive Date: 20240207
  Receipt Date: 20240814
  Transmission Date: 20241016
  Serious: Yes (Other)
  Sender: RANBAXY
  Company Number: PT-SUN PHARMACEUTICAL INDUSTRIES LTD-2024R1-430440

PATIENT
  Age: 14 Year
  Sex: Female

DRUGS (1)
  1. ACETAMINOPHEN [Suspect]
     Active Substance: ACETAMINOPHEN
     Indication: Respiratory tract infection
     Dosage: UNK
     Route: 065

REACTIONS (1)
  - Tubulointerstitial nephritis [Recovered/Resolved]
